FAERS Safety Report 9243225 (Version 2)
Quarter: 2013Q2

REPORT INFORMATION
  Report Type: Spontaneous
  Country: AU (occurrence: AU)
  Receive Date: 20130419
  Receipt Date: 20130531
  Transmission Date: 20140414
  Serious: Yes (Hospitalization)
  Sender: FDA-Public Use
  Company Number: AU-ASTRAZENECA-2013SE24882

PATIENT
  Age: 64 Year
  Sex: Male

DRUGS (24)
  1. CANDESARTAN CILEXETIL [Suspect]
     Route: 048
     Dates: end: 20130101
  2. CRESTOR [Suspect]
     Route: 048
  3. METFORMIN HYDROCHLORIDE [Suspect]
     Route: 048
     Dates: end: 20130101
  4. INSPRA [Suspect]
     Indication: CARDIAC FAILURE
     Route: 048
     Dates: start: 20110927, end: 20130101
  5. HYDRALAZINE HYDROCHLORIDE [Suspect]
     Indication: CARDIAC FAILURE
     Dosage: 50 MG MANE + 100 MG NOCTE
     Route: 048
     Dates: start: 2010
  6. NICORANDIL [Suspect]
     Indication: ANGINA PECTORIS
     Route: 048
     Dates: start: 2010
  7. GLICLAZIDE [Suspect]
     Dates: end: 20130101
  8. FUROSEMIDE [Suspect]
  9. PERHEXILINE MALEATE [Suspect]
     Dosage: 200 MG MANE + 100 MG NOCTE
     Route: 048
  10. PERHEXILINE MALEATE [Suspect]
     Route: 048
  11. SOTALOL [Suspect]
     Dosage: 240 MG MANE + 160 MG NOCTE
     Route: 048
  12. SOTALOL [Suspect]
     Route: 048
  13. CARVEDILOL [Suspect]
     Route: 048
  14. CARVEDILOL [Suspect]
     Route: 048
  15. COPLAVIX [Suspect]
     Dosage: 75/100 MG ONCE DAILY
     Route: 048
  16. IVABRADINE [Suspect]
     Route: 048
  17. PRAZOSIN HYDROCHLORIDE [Suspect]
     Route: 048
  18. DIGOXIN [Suspect]
     Route: 048
  19. LANTUS [Suspect]
     Route: 058
  20. NOVORAPID [Suspect]
     Dosage: 35 UNIT MANE + 45 UNITS NOCTE
     Route: 058
  21. NOVORAPID [Suspect]
     Dosage: 40 UNITS MANE, 45 UNITS NOCTE
  22. EZETIMBE [Suspect]
     Route: 048
  23. QUINAPRIL [Suspect]
     Indication: CARDIAC FAILURE
     Route: 048
     Dates: start: 2010
  24. TIOTROPIUM [Concomitant]
     Route: 055

REACTIONS (2)
  - Hypotension [Recovered/Resolved]
  - Renal failure acute [Recovered/Resolved]
